FAERS Safety Report 25627016 (Version 3)
Quarter: 2025Q3

REPORT INFORMATION
  Report Type: Spontaneous
  Country: US (occurrence: US)
  Receive Date: 20250731
  Receipt Date: 20250814
  Transmission Date: 20251021
  Serious: No
  Sender: MERCK SHARP & DOHME LLC
  Company Number: US-009507513-2314845

PATIENT
  Sex: Female

DRUGS (3)
  1. JANUVIA [Suspect]
     Active Substance: SITAGLIPTIN PHOSPHATE
     Indication: Diabetes mellitus
     Dosage: 1 TABLET DAILY, STRENGTH: 100 MG
     Route: 048
     Dates: end: 20250724
  2. ATORVASTATIN [Concomitant]
     Active Substance: ATORVASTATIN
  3. LEVOTHYROXINE [Concomitant]
     Active Substance: LEVOTHYROXINE

REACTIONS (15)
  - Weight increased [Recovering/Resolving]
  - Sleep disorder [Recovering/Resolving]
  - Hunger [Recovering/Resolving]
  - Hyperhidrosis [Recovering/Resolving]
  - Pruritus [Recovering/Resolving]
  - Oedema peripheral [Recovering/Resolving]
  - Localised oedema [Recovering/Resolving]
  - Palpitations [Recovering/Resolving]
  - Dyspnoea [Recovering/Resolving]
  - Arthralgia [Recovering/Resolving]
  - Rash [Recovering/Resolving]
  - Blister [Recovering/Resolving]
  - Headache [Recovering/Resolving]
  - Hypoglycaemia [Recovering/Resolving]
  - Insomnia [Recovering/Resolving]
